FAERS Safety Report 8740382 (Version 3)
Quarter: 2012Q4

REPORT INFORMATION
  Report Type: 
  Country: US (occurrence: US)
  Receive Date: 20120823
  Receipt Date: 20121003
  Transmission Date: 20130627
  Serious: Yes (Life-Threatening)
  Sender: FDA-Public Use
  Company Number: US-009507513-1208USA005398

PATIENT
  Age: 6 Year
  Sex: Female
  Weight: 29.25 kg

DRUGS (3)
  1. ASMANEX TWISTHALER [Suspect]
     Dosage: 110 Microgram, bid
     Route: 055
     Dates: start: 20111205
  2. ASMANEX TWISTHALER [Suspect]
     Dosage: 220 Microgram, UNK
     Dates: start: 20120513
  3. ALBUTEROL [Concomitant]

REACTIONS (3)
  - Asthma exercise induced [Recovered/Resolved]
  - Drug dose omission [Unknown]
  - Product quality issue [Unknown]
